FAERS Safety Report 6089729-X (Version None)
Quarter: 2009Q1

REPORT INFORMATION
  Report Type: 
  Country: None (occurrence: None)
  Receive Date: 20090218
  Receipt Date: 20090218
  Transmission Date: 20090719
  Serious: Yes (Other)
  Sender: FDA-Public Use
  Company Number: None

PATIENT
  Age: 29 Year
  Sex: Female
  Weight: 63.5036 kg

DRUGS (1)
  1. MIRENA [Suspect]
     Dosage: IUD UNK
     Dates: start: 20080825, end: 20090225

REACTIONS (16)
  - ABDOMINAL DISTENSION [None]
  - ACNE [None]
  - ANXIETY [None]
  - ARTHRALGIA [None]
  - DIZZINESS [None]
  - GENITAL HAEMORRHAGE [None]
  - HEADACHE [None]
  - HYPERSOMNIA [None]
  - INSOMNIA [None]
  - LOSS OF LIBIDO [None]
  - MUSCLE SPASMS [None]
  - MYALGIA [None]
  - PANIC ATTACK [None]
  - SKIN ODOUR ABNORMAL [None]
  - VAGINAL ODOUR [None]
  - WEIGHT INCREASED [None]
